FAERS Safety Report 24686001 (Version 2)
Quarter: 2024Q4

REPORT INFORMATION
  Report Type: Report from Study
  Country: CA (occurrence: CA)
  Receive Date: 20241202
  Receipt Date: 20241223
  Transmission Date: 20250115
  Serious: Yes (Other)
  Sender: TAKEDA
  Company Number: CA-TAKEDA-2023TUS072661

PATIENT
  Age: 31 Year
  Sex: Female

DRUGS (8)
  1. VEDOLIZUMAB [Suspect]
     Active Substance: VEDOLIZUMAB
     Indication: Crohn^s disease
     Dosage: 300 MILLIGRAM
  2. VEDOLIZUMAB [Suspect]
     Active Substance: VEDOLIZUMAB
     Dosage: 300 MILLIGRAM
  3. VEDOLIZUMAB [Suspect]
     Active Substance: VEDOLIZUMAB
     Dosage: 300 MILLIGRAM
  4. VEDOLIZUMAB [Suspect]
     Active Substance: VEDOLIZUMAB
     Dosage: 300 MILLIGRAM, Q4WEEKS
     Dates: start: 20241218
  5. PANTOPRAZOLE SODIUM [Suspect]
     Active Substance: PANTOPRAZOLE SODIUM
     Indication: Product used for unknown indication
     Dosage: 40 MILLIGRAM
  6. Cortiment [Concomitant]
     Dosage: UNK UNK, QD
     Dates: start: 202306
  7. STELARA [Concomitant]
     Active Substance: USTEKINUMAB
     Dosage: UNK UNK, Q4WEEKS
     Dates: start: 2019
  8. FERAMAX [Concomitant]
     Active Substance: IRON\POLYSACCHARIDES
     Dosage: 300 MILLIGRAM, QD

REACTIONS (6)
  - Crohn^s disease [Unknown]
  - Haemorrhoids [Unknown]
  - Off label use [Unknown]
  - Iron deficiency [Unknown]
  - Chronic gastritis [Unknown]
  - Constipation [Unknown]

NARRATIVE: CASE EVENT DATE: 20241218
